FAERS Safety Report 8611043-6 (Version None)
Quarter: 2012Q3

REPORT INFORMATION
  Report Type: 
  Country: None (occurrence: None)
  Receive Date: 20120822
  Receipt Date: 20120817
  Transmission Date: 20120928
  Serious: Yes (Other)
  Sender: FDA-Public Use
  Company Number: GB-PFIZER INC-2012201897

PATIENT
  Age: 53 Year
  Sex: Female
  Weight: 65 kg

DRUGS (4)
  1. ELLESTE-DUET [Concomitant]
     Indication: HORMONE REPLACEMENT THERAPY
     Dosage: 1 MG, 1X/DAY
     Route: 048
     Dates: start: 20120731
  2. ACETAMINOPHEN AND CODEINE PHOSPHATE [Concomitant]
     Indication: PAIN
     Dosage: 30/500. 1-2 FOUR TIMES A DAY.
     Route: 048
     Dates: start: 20120731
  3. SERTRALINE HYDROCHLORIDE [Suspect]
     Indication: DEPRESSED MOOD
     Dosage: 50 MG, 1X/DAY
     Route: 048
     Dates: start: 20120731, end: 20120801
  4. METRONIDAZOLE [Suspect]
     Indication: DENTAL CARE
     Dosage: 200 MG, 3X/DAY
     Dates: start: 20120727

REACTIONS (3)
  - MIGRAINE [None]
  - DIARRHOEA [None]
  - VISION BLURRED [None]
